FAERS Safety Report 25012356 (Version 1)
Quarter: 2025Q1

REPORT INFORMATION
  Report Type: Spontaneous
  Country: GB (occurrence: GB)
  Receive Date: 20250226
  Receipt Date: 20250226
  Transmission Date: 20250409
  Serious: Yes (Other)
  Sender: AUROBINDO
  Company Number: GB-MHRA-TPP10424992C24398848YC1738852101299

PATIENT
  Age: 45 Year
  Sex: Female
  Weight: 54 kg

DRUGS (4)
  1. NITROFURANTOIN [Suspect]
     Active Substance: NITROFURANTOIN
     Indication: Ill-defined disorder
     Dosage: 50 MILLIGRAM, TWO TIMES A DAY
     Route: 065
     Dates: start: 20241227
  2. CALCIUM CARBONATE\CHOLECALCIFEROL [Concomitant]
     Active Substance: CALCIUM CARBONATE\CHOLECALCIFEROL
     Indication: Ill-defined disorder
     Dosage: 1 DOSAGE FORM, TWO TIMES A DAY (ONE TO BE TAKEN TWICE A DAY)
     Route: 065
     Dates: start: 20220111
  3. FLUTICASONE FUROATE [Concomitant]
     Active Substance: FLUTICASONE FUROATE
     Indication: Ill-defined disorder
     Dosage: 1 DOSAGE FORM, ONCE A DAY
     Route: 065
     Dates: start: 20200528
  4. OTOMIZE [Concomitant]
     Indication: Ill-defined disorder
     Dosage: 1 DOSAGE FORM, 3 TIMES A DAY (INTO THE AFFECTED EAR(S) THREE TI)
     Route: 065
     Dates: start: 20241227, end: 20250103

REACTIONS (3)
  - Disorientation [Recovered/Resolved]
  - Rash [Recovered/Resolved]
  - Hypoaesthesia [Recovered/Resolved]

NARRATIVE: CASE EVENT DATE: 20250206
